FAERS Safety Report 4659587-6 (Version None)
Quarter: 2005Q2

REPORT INFORMATION
  Report Type: 
  Country: None (occurrence: None)
  Receive Date: 20050511
  Receipt Date: 20050503
  Transmission Date: 20051028
  Serious: Yes (Life-Threatening, Hospitalization, Disabling)
  Sender: FDA-Public Use
  Company Number: US-MERCK-0505USA00500

PATIENT
  Age: 8 Year
  Sex: Male

DRUGS (3)
  1. CANCIDAS [Suspect]
     Indication: FUNGAEMIA
     Route: 042
     Dates: start: 20050418, end: 20050503
  2. VORICONAZOLE [Concomitant]
     Route: 065
  3. [THERAPY UNSPECIFIED] [Concomitant]
     Route: 065

REACTIONS (1)
  - HYPERCALCAEMIA [None]
